FAERS Safety Report 7357587-9 (Version None)
Quarter: 2011Q1

REPORT INFORMATION
  Report Type: 
  Country: None (occurrence: None)
  Receive Date: 20110309
  Receipt Date: 20110221
  Transmission Date: 20110831
  Serious: Yes (Hospitalization)
  Sender: FDA-Public Use
  Company Number: 2011MA001615

PATIENT
  Age: 49 Year
  Sex: Female

DRUGS (2)
  1. TRIAMCINOLONE ACETONIDE [Suspect]
     Indication: BONE PAIN
     Dosage: 20 MG
  2. ROPIVACAINE [Concomitant]

REACTIONS (4)
  - SEPSIS [None]
  - QUADRIPLEGIA [None]
  - EXTRADURAL ABSCESS [None]
  - STAPHYLOCOCCAL INFECTION [None]
